FAERS Safety Report 24890959 (Version 1)
Quarter: 2025Q1

REPORT INFORMATION
  Report Type: Spontaneous
  Country: US (occurrence: None)
  Receive Date: 20250127
  Receipt Date: 20250127
  Transmission Date: 20250409
  Serious: Yes (Other)
  Sender: FDA-CTU
  Company Number: None

PATIENT
  Age: 64 Year
  Sex: Female
  Weight: 69.3 kg

DRUGS (8)
  1. MUPIROCIN [Suspect]
     Active Substance: MUPIROCIN
     Indication: Surgery
     Route: 061
     Dates: start: 20250115, end: 20250126
  2. SYNTHROID [Suspect]
     Active Substance: LEVOTHYROXINE SODIUM
  3. CRESTOR [Concomitant]
     Active Substance: ROSUVASTATIN CALCIUM
  4. URSODIOL [Concomitant]
     Active Substance: URSODIOL
  5. FAMOTIDINE [Concomitant]
     Active Substance: FAMOTIDINE
  6. VITAMIN D NOS [Concomitant]
     Active Substance: CHOLECALCIFEROL\ERGOCALCIFEROL
  7. MAGNESIUM [Concomitant]
     Active Substance: MAGNESIUM
  8. COENZYME Q10 [Concomitant]
     Active Substance: DIETARY SUPPLEMENT\UBIDECARENONE

REACTIONS (10)
  - Headache [None]
  - Dizziness [None]
  - Dizziness [None]
  - Nausea [None]
  - Pruritus [None]
  - Throat tightness [None]
  - Rash pruritic [None]
  - Dysphagia [None]
  - Palpitations [None]
  - Anxiety [None]

NARRATIVE: CASE EVENT DATE: 20250126
